FAERS Safety Report 10983231 (Version 1)
Quarter: 2015Q2

REPORT INFORMATION
  Report Type: Spontaneous
  Country: BR (occurrence: BR)
  Receive Date: 20150403
  Receipt Date: 20150403
  Transmission Date: 20150821
  Serious: Yes (Other)
  Sender: FDA-Public Use
  Company Number: BR-PFIZER INC-2015110253

PATIENT
  Age: 28 Year
  Sex: Male
  Weight: 89 kg

DRUGS (2)
  1. XALATAN [Suspect]
     Active Substance: LATANOPROST
     Indication: GLAUCOMA
     Dosage: 3 ?G (1 DROP IN BOTH EYES), 1X/DAY
     Route: 047
     Dates: start: 20120109, end: 201208
  2. LOSARTAN [Concomitant]
     Active Substance: LOSARTAN
     Indication: HYPERTENSION
     Dosage: 50 MG (1 TABLET), 1X/DAY
     Dates: start: 2012

REACTIONS (7)
  - Eye pain [Unknown]
  - Visual acuity reduced [Unknown]
  - Intentional product misuse [Unknown]
  - Eye irritation [Unknown]
  - Intentional product misuse [Unknown]
  - Headache [Unknown]
  - Vision blurred [Unknown]

NARRATIVE: CASE EVENT DATE: 201208
